FAERS Safety Report 9710281 (Version 1)
Quarter: 2013Q4

REPORT INFORMATION
  Report Type: Spontaneous
  Country: US (occurrence: US)
  Receive Date: 20131126
  Receipt Date: 20131126
  Transmission Date: 20140711
  Serious: Yes (Other)
  Sender: FDA-Public Use
  Company Number: US-BRISTOL-MYERS SQUIBB COMPANY-18754697

PATIENT
  Age: 70 Year
  Sex: Male
  Weight: 70.29 kg

DRUGS (4)
  1. BYETTA [Suspect]
     Indication: TYPE 2 DIABETES MELLITUS
  2. INSULIN [Concomitant]
     Dosage: 1DF = 10UNITS
  3. METFORMIN [Concomitant]
  4. AMARYL [Concomitant]

REACTIONS (1)
  - Weight decreased [Not Recovered/Not Resolved]
